FAERS Safety Report 9602800 (Version 4)
Quarter: 2014Q1

REPORT INFORMATION
  Report Type: Spontaneous
  Country: JP (occurrence: JP)
  Receive Date: 20131007
  Receipt Date: 20140123
  Transmission Date: 20141002
  Serious: Yes (Hospitalization)
  Sender: FDA-Public Use
  Company Number: JP-PFIZER INC-2013280329

PATIENT
  Age: 68 Year
  Sex: Male
  Weight: 46 kg

DRUGS (4)
  1. INLYTA [Suspect]
     Indication: RENAL CELL CARCINOMA
     Dosage: 6 MG, 2X/DAY
     Route: 048
     Dates: start: 20130213, end: 20130326
  2. INLYTA [Suspect]
     Dosage: 8 MG, 2X/DAY
     Route: 048
     Dates: start: 20130327, end: 20130626
  3. INLYTA [Suspect]
     Dosage: 8 MG, 2X/DAY OR 10 MG, 2X/DAY ALTERNATE DAY
     Route: 048
     Dates: start: 20130627, end: 20130820
  4. INLYTA [Suspect]
     Dosage: 10 MG, 2X/DAY
     Route: 048
     Dates: start: 20130821, end: 20130917

REACTIONS (2)
  - Pneumatosis intestinalis [Recovered/Resolved]
  - Abdominal pain [Recovered/Resolved]
